FAERS Safety Report 4367725-8 (Version None)
Quarter: 2004Q2

REPORT INFORMATION
  Report Type: 
  Country: None (occurrence: None)
  Receive Date: 20040527
  Receipt Date: 20031024
  Transmission Date: 20050107
  Serious: Yes (Disabling)
  Sender: FDA-Public Use
  Company Number: 350185

PATIENT
  Age: 36 Year
  Sex: Male

DRUGS (1)
  1. LARIAM [Suspect]
     Indication: MALARIA PROPHYLAXIS
     Dosage: 250 MG, 1 PER WEEK ORAL
     Route: 048
     Dates: start: 20030615, end: 20030815

REACTIONS (9)
  - ABNORMAL BEHAVIOUR [None]
  - ANXIETY [None]
  - CONFUSIONAL STATE [None]
  - DIZZINESS [None]
  - HEAD DISCOMFORT [None]
  - INSOMNIA [None]
  - PSYCHOTIC DISORDER [None]
  - TINNITUS [None]
  - TREMOR [None]
